FAERS Safety Report 12089890 (Version 4)
Quarter: 2016Q3

REPORT INFORMATION
  Report Type: Spontaneous
  Country: US (occurrence: US)
  Receive Date: 20160218
  Receipt Date: 20160818
  Transmission Date: 20161109
  Serious: No
  Sender: FDA-Public Use
  Company Number: US-PFIZER INC-2016053802

PATIENT
  Age: 68 Year
  Sex: Female

DRUGS (11)
  1. HYDROXYCHLOROQUINE [Concomitant]
     Active Substance: HYDROXYCHLOROQUINE
     Dosage: 200 MG, UNK
  2. PRAVASTATIN. [Concomitant]
     Active Substance: PRAVASTATIN
     Dosage: 20 MG, UNK
  3. ESCITALOPRAM [Concomitant]
     Active Substance: ESCITALOPRAM OXALATE
     Dosage: 10 MG, UNK
  4. MELOXICAM. [Concomitant]
     Active Substance: MELOXICAM
     Dosage: 15 MG, UNK
  5. PRAVASTATIN. [Concomitant]
     Active Substance: PRAVASTATIN
     Dosage: 40 UNK, UNK
  6. XELJANZ [Suspect]
     Active Substance: TOFACITINIB CITRATE
     Indication: RHEUMATOID ARTHRITIS
     Dosage: 5 MG, 2X/DAY
     Route: 048
     Dates: start: 20151128
  7. CEFTIN [Concomitant]
     Active Substance: CEFUROXIME AXETIL
     Dosage: 250 MG, UNK
  8. SULFASALAZINE. [Concomitant]
     Active Substance: SULFASALAZINE
     Dosage: 500 MG, UNK
  9. XELJANZ [Suspect]
     Active Substance: TOFACITINIB CITRATE
     Dosage: 5 MG, DAILY
     Route: 048
     Dates: start: 201511
  10. ESCITALOPRAM [Concomitant]
     Active Substance: ESCITALOPRAM OXALATE
     Dosage: 20 MG, UNK
  11. OMEPRAZOLE. [Concomitant]
     Active Substance: OMEPRAZOLE
     Dosage: 20 MG, UNK

REACTIONS (5)
  - Diarrhoea [Not Recovered/Not Resolved]
  - Sinusitis [Recovered/Resolved]
  - Nasopharyngitis [Not Recovered/Not Resolved]
  - Dizziness [Unknown]
  - Blood cholesterol increased [Unknown]

NARRATIVE: CASE EVENT DATE: 20160114
